FAERS Safety Report 4350851-7 (Version None)
Quarter: 2004Q2

REPORT INFORMATION
  Report Type: 
  Country: None (occurrence: None)
  Receive Date: 20040428
  Receipt Date: 20040416
  Transmission Date: 20050107
  Serious: Yes (Death)
  Sender: FDA-Public Use
  Company Number: 04H-163-0256322-00

PATIENT
  Age: 81 Year
  Sex: Female

DRUGS (1)
  1. MANNITOL I.V. 20%, USP, FLEX. CONTAINER (MANNITOL I.V.) (MANNITOL) (MA [Suspect]
     Indication: INTRACRANIAL PRESSURE INCREASED
     Dosage: INTRAVENOUS
     Route: 042
     Dates: start: 20040404

REACTIONS (4)
  - DIALYSIS [None]
  - DRUG INEFFECTIVE [None]
  - PHARMACEUTICAL PRODUCT COMPLAINT [None]
  - RENAL FAILURE [None]
